FAERS Safety Report 18773577 (Version 1)
Quarter: 2021Q1

REPORT INFORMATION
  Report Type: Spontaneous
  Country: US (occurrence: US)
  Receive Date: 20210122
  Receipt Date: 20210122
  Transmission Date: 20210419
  Serious: Yes (Hospitalization)
  Sender: FDA-Public Use
  Company Number: None

PATIENT
  Sex: Female
  Weight: 51.7 kg

DRUGS (3)
  1. CYCLOPHOSPHAMIDE. [Suspect]
     Active Substance: CYCLOPHOSPHAMIDE
  2. CYCLOPHOSPHAMIDE. [Suspect]
     Active Substance: CYCLOPHOSPHAMIDE
  3. DOXORUBICIN HYDROCHLORIDE. [Concomitant]
     Active Substance: DOXORUBICIN HYDROCHLORIDE

REACTIONS (8)
  - Pain [None]
  - Oropharyngeal pain [None]
  - Streptococcus test positive [None]
  - Staphylococcal pharyngitis [None]
  - Pyrexia [None]
  - Cheilitis [None]
  - Blood alkaline phosphatase increased [None]
  - Haemoglobin decreased [None]

NARRATIVE: CASE EVENT DATE: 20210115
